FAERS Safety Report 8947695 (Version 1)
Quarter: 2012Q4

REPORT INFORMATION
  Report Type: 
  Country: GB (occurrence: GB)
  Receive Date: 20121205
  Receipt Date: 20121205
  Transmission Date: 20130627
  Serious: Yes (Other)
  Sender: FDA-Public Use
  Company Number: PHHY2012GB110586

PATIENT
  Age: 77 Year
  Sex: Male

DRUGS (8)
  1. DONEPEZIL [Suspect]
     Indication: DEMENTIA
     Dosage: 5 mg
     Route: 048
     Dates: start: 20121103, end: 20121113
  2. PROPAFENONE [Concomitant]
  3. ASPIRIN [Concomitant]
  4. ADCAL-D3 [Concomitant]
  5. MACROGOL [Concomitant]
  6. PARACETAMOL [Concomitant]
  7. CO-CARELDOPA [Concomitant]
  8. MINIHEP [Concomitant]

REACTIONS (1)
  - Electrocardiogram PR prolongation [Unknown]
